FAERS Safety Report 21745965 (Version 4)
Quarter: 2023Q4

REPORT INFORMATION
  Report Type: Report from Study
  Country: US (occurrence: US)
  Receive Date: 20221219
  Receipt Date: 20231221
  Transmission Date: 20240110
  Serious: No
  Sender: FDA-Public Use
  Company Number: US-002147023-NVSC2022US291006

PATIENT
  Age: 17 Year
  Sex: Male
  Weight: 54 kg

DRUGS (2)
  1. ILARIS [Suspect]
     Active Substance: CANAKINUMAB
     Indication: Pyrexia
     Dosage: 195 MG, OTHER (Q9 WEEKS)
     Route: 058
     Dates: start: 20191021
  2. ILARIS [Suspect]
     Active Substance: CANAKINUMAB
     Dosage: 195 MG, OTHER (Q12 WEEKS)
     Route: 058
     Dates: start: 20191021

REACTIONS (4)
  - Inappropriate schedule of product administration [Recovered/Resolved]
  - Product selection error [Recovered/Resolved]
  - Product administration error [Unknown]
  - Product label issue [Unknown]

NARRATIVE: CASE EVENT DATE: 20221203
